FAERS Safety Report 5914692-9 (Version None)
Quarter: 2008Q4

REPORT INFORMATION
  Report Type: 
  Country: None (occurrence: None)
  Receive Date: 20081010
  Receipt Date: 20080930
  Transmission Date: 20090506
  Serious: Yes (Death, Hospitalization)
  Sender: FDA-Public Use
  Company Number: FR-JNJFOC-20081000284

PATIENT
  Age: 66 Year
  Sex: Male

DRUGS (6)
  1. DURAGESIC-100 [Suspect]
     Indication: PAIN
     Route: 062
  2. MORPHINE [Interacting]
     Indication: PAIN
     Route: 048
  3. LYRICA [Concomitant]
     Indication: PAIN
     Route: 048
  4. ATACAND [Concomitant]
     Indication: HYPERTENSION
     Route: 048
  5. TRIFLUCAN [Concomitant]
     Indication: FUNGAL INFECTION
  6. TEMSIROLIMUS [Concomitant]
     Route: 042

REACTIONS (8)
  - BRADYPNOEA [None]
  - CONFUSIONAL STATE [None]
  - DRUG INTERACTION [None]
  - MIOSIS [None]
  - MYOCLONUS [None]
  - RENAL NEOPLASM [None]
  - SOMNOLENCE [None]
  - VOMITING [None]
